FAERS Safety Report 7787606-7 (Version None)
Quarter: 2011Q3

REPORT INFORMATION
  Report Type: 
  Country: None (occurrence: None)
  Receive Date: 20110929
  Receipt Date: 20110222
  Transmission Date: 20111222
  Serious: Yes (Other)
  Sender: FDA-Public Use
  Company Number: US-BAYER-201030233NA

PATIENT
  Age: 23 Year
  Sex: Female
  Weight: 58.957 kg

DRUGS (27)
  1. NAPROXEN [Concomitant]
     Dosage: UNK
     Dates: start: 20030501
  2. FLUCONAZOLE [Concomitant]
     Dosage: UNK
     Dates: start: 20080901
  3. EXCEDRIN (MIGRAINE) [Concomitant]
     Indication: MIGRAINE
     Dosage: UNK UNK, PRN
     Route: 048
  4. DROSPIRENONE AND ETHINYL ESTRADIOL [Suspect]
     Indication: CONTRACEPTION
     Dosage: UNK UNK, QD
     Dates: start: 20080701, end: 20091001
  5. ZADITOR [Concomitant]
     Dosage: UNK
     Route: 047
     Dates: start: 20040322
  6. RHINOCORT [Concomitant]
     Dosage: UNK
     Dates: start: 20040322
  7. YASMIN [Suspect]
     Indication: CONTRACEPTION
     Dosage: UNK UNK, QD
     Route: 048
     Dates: start: 20040301, end: 20080601
  8. DURADRIN [Concomitant]
     Indication: MIGRAINE
     Dosage: UNK
     Dates: start: 20000301
  9. ALBUTEROL [Concomitant]
     Indication: ASTHMA
     Dosage: UNK
     Dates: start: 20010701
  10. INDOMETHACIN [Concomitant]
     Dosage: UNK
     Dates: start: 20040601
  11. SINGULAIR [Concomitant]
     Indication: ASTHMA
     Dosage: 10 MG, UNK
     Route: 048
     Dates: start: 20080609
  12. MIDOL EXTENDED RELIEF CAPLETS [Concomitant]
     Indication: PREMENSTRUAL SYNDROME
     Dosage: UNK UNK, PRN
     Route: 048
  13. ASCORBIC ACID [Concomitant]
     Dosage: UNK UNK, PRN
     Route: 048
  14. DROSPIRENONE AND ETHINYL ESTRADIOL [Suspect]
     Indication: ACNE
  15. ELIDEL [Concomitant]
     Indication: ACNE
     Dosage: UNK
     Dates: start: 20041101
  16. DOXYCYCLINE [Concomitant]
     Indication: INFECTION
     Dosage: UNK
     Dates: start: 20080801
  17. TEMOVATE [Concomitant]
     Indication: DERMATITIS
  18. TYLENOL-500 [Concomitant]
     Indication: PAIN
     Dosage: UNK UNK, PRN
     Route: 048
  19. MAGNESIUM [Concomitant]
     Dosage: 250 MG, UNK
     Route: 048
  20. CENTRUM [Concomitant]
     Route: 048
  21. DIFFERIN [Concomitant]
     Dosage: 0.1 %, UNK
  22. OPTIVAR [Concomitant]
     Dosage: UNK
     Route: 047
     Dates: start: 20040322
  23. YASMIN [Suspect]
     Indication: ACNE
     Dosage: UNK
     Dates: end: 20090901
  24. ASMANEX TWISTHALER [Concomitant]
     Dosage: 220 ?G, UNK
     Route: 048
     Dates: start: 20080610
  25. MAXAIR [Concomitant]
     Indication: ASTHMA
     Dosage: UNK
     Dates: start: 20080601
  26. FLUTICASONE PROPIONATE [Concomitant]
     Dosage: 0.05 %, UNK
     Dates: start: 20080609
  27. RESPIRATORY SYSTEM [Concomitant]
     Dosage: UNK
     Dates: start: 20040322

REACTIONS (14)
  - FEELING ABNORMAL [None]
  - DISSOCIATION [None]
  - APHASIA [None]
  - FATIGUE [None]
  - IRRITABILITY [None]
  - FLUSHING [None]
  - DYSPHONIA [None]
  - DEPRESSION [None]
  - COMPLEX PARTIAL SEIZURES [None]
  - SYNCOPE [None]
  - FEELING HOT [None]
  - MEMORY IMPAIRMENT [None]
  - DEJA VU [None]
  - CONFUSIONAL STATE [None]
